FAERS Safety Report 5107122-0 (Version None)
Quarter: 2006Q3

REPORT INFORMATION
  Report Type: 
  Country: None (occurrence: None)
  Receive Date: 20060731
  Receipt Date: 20060407
  Transmission Date: 20061208
  Serious: No
  Sender: FDA-Public Use
  Company Number: 2006PV011846

PATIENT
  Age: 50 Year
  Sex: Female
  Weight: 129.2752 kg

DRUGS (7)
  1. BYETTA [Suspect]
     Indication: DIABETES MELLITUS NON-INSULIN-DEPENDENT
     Dosage: SEE IMAGE
     Route: 058
     Dates: end: 20060301
  2. STARLIX [Concomitant]
  3. GLUCOVANCE [Concomitant]
  4. TYLENOL [Concomitant]
  5. NAPROXEN [Concomitant]
  6. PARLODEL [Concomitant]
  7. ZESTRIL [Concomitant]

REACTIONS (15)
  - AGEUSIA [None]
  - ALOPECIA [None]
  - BLOOD GLUCOSE DECREASED [None]
  - DISTURBANCE IN ATTENTION [None]
  - DRY SKIN [None]
  - DRY THROAT [None]
  - EYE SWELLING [None]
  - HEADACHE [None]
  - HEART RATE INCREASED [None]
  - INSOMNIA [None]
  - NASAL OEDEMA [None]
  - NODULE [None]
  - PSYCHOMOTOR HYPERACTIVITY [None]
  - SWOLLEN TONGUE [None]
  - URTICARIA [None]
